FAERS Safety Report 8421659 (Version 2)
Quarter: 2013Q4

REPORT INFORMATION
  Report Type: Spontaneous
  Country: AR (occurrence: AR)
  Receive Date: 20120223
  Receipt Date: 20131007
  Transmission Date: 20140711
  Serious: Yes (Hospitalization, Other)
  Sender: FDA-Public Use
  Company Number: AR-AMGEN-ARGSP2012010318

PATIENT
  Age: 65 Year
  Sex: Female

DRUGS (3)
  1. ENBREL [Suspect]
     Indication: RHEUMATOID ARTHRITIS
     Dosage: 25 MG, 2X/WEEK
     Route: 058
     Dates: start: 20061227, end: 201107
  2. DICLOFENAC [Concomitant]
     Dosage: UNK
  3. MELATOL [Concomitant]
     Dosage: UNK

REACTIONS (6)
  - Cerebrovascular accident [Recovered/Resolved]
  - Pulmonary oedema [Recovered/Resolved]
  - Arthritis [Recovering/Resolving]
  - Arthralgia [Recovering/Resolving]
  - Pain in extremity [Recovering/Resolving]
  - Local swelling [Recovering/Resolving]
